FAERS Safety Report 23820177 (Version 1)
Quarter: 2024Q2

REPORT INFORMATION
  Report Type: Spontaneous
  Country: US (occurrence: None)
  Receive Date: 20240503
  Receipt Date: 20240503
  Transmission Date: 20240716
  Serious: Yes (Hospitalization)
  Sender: FDA-Public Use
  Company Number: None

PATIENT
  Age: 67 Year
  Sex: Male
  Weight: 98 kg

DRUGS (2)
  1. LITHIUM CARBONATE [Suspect]
     Active Substance: LITHIUM CARBONATE
     Indication: Bipolar I disorder
     Dosage: FREQUENCY : 3 TIMES A DAY;?
     Route: 048
     Dates: start: 20110204
  2. LISINOPRIL [Suspect]
     Active Substance: LISINOPRIL

REACTIONS (4)
  - Aphasia [None]
  - Confusional state [None]
  - Tardive dyskinesia [None]
  - Tremor [None]

NARRATIVE: CASE EVENT DATE: 20221227
